FAERS Safety Report 12085218 (Version 2)
Quarter: 2016Q1

REPORT INFORMATION
  Report Type: Spontaneous
  Country: CA (occurrence: CA)
  Receive Date: 20160217
  Receipt Date: 20160316
  Transmission Date: 20160526
  Serious: Yes (Hospitalization, Other)
  Sender: FDA-Public Use
  Company Number: CA-PFIZER INC-2016087349

PATIENT
  Age: 34 Year
  Sex: Female
  Weight: 125 kg

DRUGS (4)
  1. DOSTINEX [Suspect]
     Active Substance: CABERGOLINE
     Indication: BRAIN NEOPLASM
     Dosage: 1 DF, WEEKLY (SPLIT 2 HALF TABLETS SEVERAL DAYS APART)
     Route: 048
     Dates: start: 2014
  2. VITAMINS (IRON TABLETS) [Concomitant]
     Dosage: UNK
  3. BABY ASPIRIN [Concomitant]
     Active Substance: ASPIRIN
     Dosage: UNK
  4. DOSTINEX [Suspect]
     Active Substance: CABERGOLINE
     Indication: PROLACTINOMA
     Dosage: 0.5 MG, HALF TABLET WEEKLY
     Route: 048
     Dates: start: 20150918, end: 201511

REACTIONS (13)
  - Arrhythmia [Recovered/Resolved]
  - Hypertension [Recovered/Resolved]
  - Headache [Recovered/Resolved]
  - Dizziness [Recovered/Resolved]
  - Tachycardia [Recovered/Resolved]
  - Depression [Recovered/Resolved]
  - Blood pressure fluctuation [Recovered/Resolved]
  - Dyspnoea [Recovered/Resolved]
  - Palpitations [Recovered/Resolved]
  - Chest pain [Recovered/Resolved]
  - Anxiety [Recovered/Resolved]
  - Respiratory rate increased [Recovered/Resolved]
  - Suicidal ideation [Recovered/Resolved]

NARRATIVE: CASE EVENT DATE: 201508
